FAERS Safety Report 26090354 (Version 1)
Quarter: 2025Q4

REPORT INFORMATION
  Report Type: Spontaneous
  Country: GB (occurrence: None)
  Receive Date: 20251126
  Receipt Date: 20251126
  Transmission Date: 20260118
  Serious: Yes (Hospitalization, Other)
  Sender: ENCUBE ETHICALS PVT. LTD.
  Company Number: GB-Encube-002625

PATIENT
  Age: 67 Year

DRUGS (2)
  1. ESTRADIOL [Suspect]
     Active Substance: ESTRADIOL
     Indication: Transgender hormonal therapy
  2. CYPROTERONE ACETATE [Suspect]
     Active Substance: CYPROTERONE ACETATE
     Indication: Transgender hormonal therapy

REACTIONS (3)
  - Meningioma [Recovering/Resolving]
  - Off label use [Unknown]
  - Pulmonary embolism [Unknown]
